FAERS Safety Report 4544626-3 (Version None)
Quarter: 2005Q1

REPORT INFORMATION
  Report Type: 
  Country: None (occurrence: None)
  Receive Date: 20050104
  Receipt Date: 20041222
  Transmission Date: 20050727
  Serious: Yes (Hospitalization)
  Sender: FDA-Public Use
  Company Number: GXKR2004GB00646

PATIENT
  Age: 42 Year
  Sex: Female

DRUGS (2)
  1. MIRTAZAPINE [Suspect]
     Indication: MEDICATION ERROR
     Dosage: 240 MG, ORAL
     Route: 048
  2. DIAZEPAM [Suspect]
     Indication: MEDICATION ERROR
     Dosage: 100 MG, ORAL
     Route: 048

REACTIONS (9)
  - CARDIOVASCULAR DISORDER [None]
  - DEPRESSED LEVEL OF CONSCIOUSNESS [None]
  - HYPOTENSION [None]
  - HYPOTONIA [None]
  - INCOHERENT [None]
  - MIOSIS [None]
  - MULTIPLE DRUG OVERDOSE [None]
  - RESPIRATORY RATE DECREASED [None]
  - SUICIDE ATTEMPT [None]
